FAERS Safety Report 9860891 (Version 2)
Quarter: 2014Q1

REPORT INFORMATION
  Report Type: Spontaneous
  Country: None (occurrence: US)
  Receive Date: 20140202
  Receipt Date: 20140202
  Transmission Date: 20141002
  Serious: No
  Sender: FDA-Public Use
  Company Number: US-ALLERGAN-1302148US

PATIENT
  Age: 61 Year
  Sex: Female

DRUGS (5)
  1. BOTOX [Suspect]
     Indication: TORTICOLLIS
     Dosage: 190 UNITS, SINGLE
     Route: 030
     Dates: start: 201211, end: 201211
  2. BOTOX [Suspect]
     Indication: BLEPHAROSPASM
     Dosage: 16.5 UNITS, SINGLE
     Route: 030
     Dates: start: 201211, end: 201211
  3. GABAPENTIN [Concomitant]
     Indication: PRODUCT USED FOR UNKNOWN INDICATION
  4. VICODIN [Concomitant]
     Indication: PRODUCT USED FOR UNKNOWN INDICATION
  5. ZANAFLEX [Concomitant]
     Indication: PRODUCT USED FOR UNKNOWN INDICATION

REACTIONS (17)
  - Salivary gland mass [Unknown]
  - Lymphadenopathy [Unknown]
  - Herpes zoster [Unknown]
  - Sialoadenitis [Unknown]
  - Candida infection [Recovered/Resolved]
  - Fatigue [Recovered/Resolved]
  - Chills [Recovered/Resolved]
  - Vision blurred [Recovered/Resolved]
  - Hemiparesis [Unknown]
  - Dysphagia [Recovering/Resolving]
  - Muscular weakness [Unknown]
  - Influenza like illness [Recovered/Resolved]
  - Rash [Unknown]
  - Rash [Unknown]
  - Rash [Unknown]
  - Rash [Unknown]
  - Dry mouth [Unknown]
